FAERS Safety Report 8043398-8 (Version None)
Quarter: 2012Q1

REPORT INFORMATION
  Report Type: 
  Country: None (occurrence: None)
  Receive Date: 20120112
  Receipt Date: 20120109
  Transmission Date: 20120608
  Serious: Yes (Other)
  Sender: FDA-Public Use
  Company Number: KR-BAYER-2012-002663

PATIENT
  Sex: Male

DRUGS (1)
  1. LEVITRA [Suspect]
     Dosage: 0.5 DF, ONCE
     Route: 048
     Dates: start: 20120106, end: 20120106

REACTIONS (2)
  - DRUG EFFECT DECREASED [None]
  - HAEMATOCHEZIA [None]
